FAERS Safety Report 22075062 (Version 1)
Quarter: 2023Q1

REPORT INFORMATION
  Report Type: Spontaneous
  Country: CA (occurrence: CA)
  Receive Date: 20230308
  Receipt Date: 20230308
  Transmission Date: 20230418
  Serious: Yes (Other)
  Sender: FDA-Public Use
  Company Number: CA-HLS-202300528

PATIENT
  Sex: Female

DRUGS (21)
  1. ARIPIPRAZOLE [Suspect]
     Active Substance: ARIPIPRAZOLE
     Indication: Schizophrenia
     Dosage: NOT SPECIFIED DOSAGE FORM
     Route: 065
  2. CLOZAPINE [Suspect]
     Active Substance: CLOZAPINE
     Indication: Schizophrenia
     Dosage: TABLETS DOSAGE FORM
     Route: 065
  3. FLUPENTIXOL DIHYDROCHLORIDE [Suspect]
     Active Substance: FLUPENTIXOL DIHYDROCHLORIDE
     Indication: Schizophrenia
     Route: 065
  4. LATUDA [Suspect]
     Active Substance: LURASIDONE HYDROCHLORIDE
     Indication: Product used for unknown indication
     Dosage: TABLETS DOSAGE FORM
     Route: 065
  5. LURASIDONE HYDROCHLORIDE [Suspect]
     Active Substance: LURASIDONE HYDROCHLORIDE
     Indication: Schizophrenia
     Route: 065
  6. OLANZAPINE [Suspect]
     Active Substance: OLANZAPINE
     Indication: Product used for unknown indication
     Dosage: NOT SPECIFIED DOSAGE FORM
     Route: 065
  7. PALIPERIDONE [Suspect]
     Active Substance: PALIPERIDONE
     Indication: Schizophrenia
     Route: 065
  8. PALIPERIDONE [Suspect]
     Active Substance: PALIPERIDONE
     Indication: Product used for unknown indication
     Route: 065
  9. PALIPERIDONE [Suspect]
     Active Substance: PALIPERIDONE
     Indication: Schizophrenia
     Route: 065
  10. PALIPERIDONE [Suspect]
     Active Substance: PALIPERIDONE
     Indication: Product used for unknown indication
     Route: 065
  11. PALIPERIDONE [Suspect]
     Active Substance: PALIPERIDONE
     Indication: Schizophrenia
     Dosage: SUSPENSION DOSAGE FORM
     Route: 065
  12. PALIPERIDONE [Suspect]
     Active Substance: PALIPERIDONE
     Indication: Product used for unknown indication
     Dosage: SUSPENSION DOSAGE FORM
     Route: 065
  13. QUETIAPINE FUMARATE [Suspect]
     Active Substance: QUETIAPINE FUMARATE
     Indication: Schizophrenia
     Route: 048
  14. RISPERDAL [Suspect]
     Active Substance: RISPERIDONE
     Indication: Schizophrenia
     Dosage: NOT SPECIFIED DOSAGE FORM
     Route: 065
  15. RISPERDAL CONSTA [Suspect]
     Active Substance: RISPERIDONE
     Indication: Schizophrenia
     Dosage: KIT DOSAGE FORM
     Route: 030
  16. SAPHRIS [Suspect]
     Active Substance: ASENAPINE MALEATE
     Indication: Schizophrenia
     Dosage: TABLETS DOSAGE FORM
     Route: 065
  17. ZIPRASIDONE HYDROCHLORIDE [Suspect]
     Active Substance: ZIPRASIDONE HYDROCHLORIDE
     Indication: Schizophrenia
     Route: 065
  18. ZIPRASIDONE MESYLATE [Suspect]
     Active Substance: ZIPRASIDONE MESYLATE
     Indication: Schizophrenia
     Route: 065
  19. ZUCLOPENTHIXOL ACETATE [Suspect]
     Active Substance: ZUCLOPENTHIXOL ACETATE
     Indication: Schizophrenia
     Route: 065
  20. ZUCLOPENTHIXOL DECANOATE [Suspect]
     Active Substance: ZUCLOPENTHIXOL DECANOATE
     Indication: Schizophrenia
     Route: 065
  21. ZYPREXA [Suspect]
     Active Substance: OLANZAPINE
     Indication: Schizophrenia
     Dosage: TABLETS DOSAGE FORM
     Route: 065

REACTIONS (13)
  - Anosognosia [Unknown]
  - Blood glucose increased [Unknown]
  - Blood prolactin abnormal [Unknown]
  - Disturbance in social behaviour [Unknown]
  - Drug ineffective [Unknown]
  - Dyskinesia [Unknown]
  - Dystonia [Unknown]
  - Metabolic disorder [Unknown]
  - Personality change [Unknown]
  - Schizophrenia [Unknown]
  - Sedation [Unknown]
  - Sexual dysfunction [Unknown]
  - Suicide attempt [Unknown]
